FAERS Safety Report 9632528 (Version 2)
Quarter: 2013Q4

REPORT INFORMATION
  Report Type: Spontaneous
  Country: BR (occurrence: BR)
  Receive Date: 20131018
  Receipt Date: 20131031
  Transmission Date: 20140711
  Serious: Yes (Other)
  Sender: FDA-Public Use
  Company Number: BR-PFIZER INC-2013295787

PATIENT
  Age: 70 Year
  Sex: Female

DRUGS (2)
  1. CELEBRA [Suspect]
     Indication: ANTIINFLAMMATORY THERAPY
     Dosage: 2 CAPSULES OF STRENGTH 200 MG (400 MG), 1X/DAY
     Route: 048
  2. ALPRAZOLAM [Concomitant]
     Dosage: UNK

REACTIONS (1)
  - Foot fracture [Unknown]
